FAERS Safety Report 10420378 (Version 1)
Quarter: 2014Q3

REPORT INFORMATION
  Report Type: Spontaneous
  Country: US (occurrence: None)
  Receive Date: 20140701
  Receipt Date: 20140701
  Transmission Date: 20150326
  Serious: No
  Sender: FDA-Public Use
  Company Number: 1000066546

PATIENT
  Sex: Male

DRUGS (4)
  1. AMILORIDE [Concomitant]
     Active Substance: AMILORIDE
  2. NIFEDIPINE. [Concomitant]
     Active Substance: NIFEDIPINE
  3. METOPROLOL [Concomitant]
     Active Substance: METOPROLOL
  4. LINZESS [Suspect]
     Active Substance: LINACLOTIDE
     Indication: CONSTIPATION
     Route: 048
     Dates: start: 20140203, end: 20140206

REACTIONS (3)
  - Diarrhoea [None]
  - Intentional product misuse [None]
  - Drug ineffective [None]

NARRATIVE: CASE EVENT DATE: 20140206
